FAERS Safety Report 5039250-2 (Version None)
Quarter: 2006Q2

REPORT INFORMATION
  Report Type: 
  Country: None (occurrence: None)
  Receive Date: 20060629
  Receipt Date: 20060522
  Transmission Date: 20061013
  Serious: Yes (Other)
  Sender: FDA-Public Use
  Company Number: US-ROCHE-449087

PATIENT
  Age: 57 Year
  Sex: Female
  Weight: 93.4 kg

DRUGS (5)
  1. CELLCEPT [Suspect]
     Indication: LUPUS NEPHRITIS
     Route: 048
  2. COUMADIN [Concomitant]
     Route: 048
  3. GLIPIZIDE [Concomitant]
     Route: 048
  4. PREDNISONE [Concomitant]
     Route: 048
  5. CAPITROL [Concomitant]
     Dosage: DRUG NAME REPORTED AS CAPTIPROL
     Route: 048

REACTIONS (6)
  - BALANCE DISORDER [None]
  - CONFUSIONAL STATE [None]
  - DELUSION [None]
  - PANIC ATTACK [None]
  - PARANOIA [None]
  - VISUAL ACUITY REDUCED [None]
